FAERS Safety Report 6332568-2 (Version None)
Quarter: 2009Q3

REPORT INFORMATION
  Report Type: 
  Country: None (occurrence: None)
  Receive Date: 20090827
  Receipt Date: 20090827
  Transmission Date: 20100115
  Serious: Yes (Hospitalization)
  Sender: FDA-Public Use
  Company Number: None

PATIENT
  Age: 23 Month
  Sex: Male
  Weight: 9.9791 kg

DRUGS (2)
  1. AVENO BABY SOOTHING RELIEF CREAMY WASH [Suspect]
     Dosage: TOPICAL
     Route: 061
     Dates: start: 20090606
  2. DAILY MULTIVITAMIN [Concomitant]

REACTIONS (5)
  - COUGH [None]
  - HYPERHIDROSIS [None]
  - OEDEMA MOUTH [None]
  - PHARYNGEAL OEDEMA [None]
  - SWELLING FACE [None]
